FAERS Safety Report 7351760-1 (Version None)
Quarter: 2011Q1

REPORT INFORMATION
  Report Type: 
  Country: None (occurrence: None)
  Receive Date: 20110225
  Receipt Date: 20101118
  Transmission Date: 20110831
  Serious: No
  Sender: FDA-Public Use
  Company Number: 319169

PATIENT
  Age: 51 Year
  Sex: Female

DRUGS (3)
  1. LANTUS [Concomitant]
  2. VICTOZA [Suspect]
     Indication: TYPE 2 DIABETES MELLITUS
     Dosage: SUBCUTANEOUS
     Route: 058
     Dates: start: 20100701
  3. GLYBURIDE/METFORMIN (GLIBENCLAMIDE, METFORMIN HYDROCHLORIDE) [Concomitant]

REACTIONS (3)
  - BLOOD GLUCOSE INCREASED [None]
  - DRUG DOSE OMISSION [None]
  - DRUG EFFECT DECREASED [None]
